FAERS Safety Report 19801741 (Version 1)
Quarter: 2021Q3

REPORT INFORMATION
  Report Type: Other
  Country: US (occurrence: US)
  Receive Date: 20210908
  Receipt Date: 20210908
  Transmission Date: 20211014
  Serious: Yes (Hospitalization)
  Sender: FDA-Public Use
  Company Number: US-ROCHE-2900778

PATIENT
  Sex: Male

DRUGS (1)
  1. OCREVUS [Suspect]
     Active Substance: OCRELIZUMAB
     Indication: PRIMARY PROGRESSIVE MULTIPLE SCLEROSIS
     Dosage: 08/NOV/2018, 08/MAY/2019, 26/SEP/2019, 06/NOV/2019, 08/MAY/2020, 09/NOV/2020, 18/NOV/2020 AND 07/MAY
     Route: 065
     Dates: start: 20181025

REACTIONS (2)
  - Escherichia infection [Unknown]
  - Off label use [Unknown]
